FAERS Safety Report 20009850 (Version 1)
Quarter: 2021Q4

REPORT INFORMATION
  Report Type: Other
  Country: US (occurrence: US)
  Receive Date: 20211029
  Receipt Date: 20211029
  Transmission Date: 20220303
  Serious: Yes (Death)
  Sender: FDA-Public Use
  Company Number: US-ROCHE-2940507

PATIENT
  Age: 61 Year
  Sex: Female

DRUGS (11)
  1. ACTEMRA [Suspect]
     Active Substance: TOCILIZUMAB
     Indication: Giant cell arteritis
     Dosage: ONLY ONE DOSE, 162 MG / 0.9 ML ACTPEN
     Route: 058
     Dates: start: 20211007, end: 20211007
  2. ACTEMRA [Suspect]
     Active Substance: TOCILIZUMAB
  3. METOPROLOL [Concomitant]
     Active Substance: METOPROLOL
     Indication: Myocardial infarction
     Dosage: MAYBE 20 TO 25 MG DOSAGE
     Route: 048
     Dates: start: 202004, end: 20211010
  4. OMEPRAZOLE [Concomitant]
     Active Substance: OMEPRAZOLE
     Route: 048
     Dates: start: 202006, end: 20211010
  5. PREDNISONE [Concomitant]
     Active Substance: PREDNISONE
     Indication: Giant cell arteritis
     Dosage: WEANED FROM 60 MG TO 25 OR 30 MG BEFORE HER DEATH
     Route: 048
     Dates: start: 202006, end: 20211010
  6. FISH OIL [Concomitant]
     Active Substance: FISH OIL
     Dosage: 1 SOFTGEL PER DAY STARTED A LONG TIME AGO, KIRKLAND SIGNITURE FISH OIL
     Dates: end: 20211010
  7. COENZYME Q10 [Concomitant]
     Active Substance: DIETARY SUPPLEMENT\UBIDECARENONE
     Dosage: STARTED A LONG TIME AGO
     Route: 048
     Dates: end: 20211010
  8. CINNAMON [Concomitant]
     Active Substance: CINNAMON
     Route: 048
     Dates: end: 20211010
  9. VITAMIN C [Concomitant]
     Active Substance: ASCORBIC ACID
     Route: 048
     Dates: end: 20211010
  10. CALCIUM [Concomitant]
     Active Substance: CALCIUM
     Dosage: STARTED PAST COUPLE OF MONTHS
     Route: 048
     Dates: start: 2021, end: 20211010
  11. VITAMIN D3 [Concomitant]
     Active Substance: CHOLECALCIFEROL
     Dosage: STARTED A LONG TIME AGO
     Route: 048

REACTIONS (1)
  - Cardiac arrest [Fatal]

NARRATIVE: CASE EVENT DATE: 20211010
